FAERS Safety Report 4588909-X (Version None)
Quarter: 2005Q1

REPORT INFORMATION
  Report Type: 
  Country: None (occurrence: None)
  Receive Date: 20050216
  Receipt Date: 20050210
  Transmission Date: 20050727
  Serious: Yes (Other)
  Sender: FDA-Public Use
  Company Number: 2005028036

PATIENT
  Sex: Male

DRUGS (2)
  1. LIPITOR [Suspect]
     Indication: ILL-DEFINED DISORDER
     Dosage: 10 MG
  2. NICOTINIC ACID [Suspect]
     Indication: ILL-DEFINED DISORDER

REACTIONS (2)
  - DISEASE PROGRESSION [None]
  - VASCULAR STENOSIS [None]
